FAERS Safety Report 5308881-4 (Version None)
Quarter: 2007Q2

REPORT INFORMATION
  Report Type: 
  Country: None (occurrence: None)
  Receive Date: 20070426
  Receipt Date: 20070420
  Transmission Date: 20071010
  Serious: Yes (Other)
  Sender: FDA-Public Use
  Company Number: US-PFIZER INC-2007032015

PATIENT
  Sex: Female
  Weight: 71.818 kg

DRUGS (3)
  1. ZYRTEC [Suspect]
     Indication: HYPERSENSITIVITY
  2. HYDROXYZINE [Concomitant]
  3. PRILOSEC [Concomitant]

REACTIONS (2)
  - DYSPHAGIA [None]
  - FLUSHING [None]
